FAERS Safety Report 5510722-7 (Version None)
Quarter: 2007Q4

REPORT INFORMATION
  Report Type: 
  Country: None (occurrence: None)
  Receive Date: 20071108
  Receipt Date: 20071102
  Transmission Date: 20080405
  Serious: Yes (Other)
  Sender: FDA-Public Use
  Company Number: A0692310A

PATIENT
  Age: 52 Year
  Sex: Female
  Weight: 72.7 kg

DRUGS (5)
  1. FLUTICASONE PROPIONATE [Suspect]
     Indication: SEASONAL ALLERGY
     Dosage: 4SPR PER DAY
     Route: 045
     Dates: start: 20071022, end: 20071025
  2. WELLBUTRIN [Concomitant]
  3. ZOLOFT [Concomitant]
  4. ADVAIR DISKUS 100/50 [Concomitant]
  5. ALBUTEROL [Concomitant]

REACTIONS (4)
  - ASTHMA [None]
  - INHALATION THERAPY [None]
  - PHARMACEUTICAL PRODUCT COMPLAINT [None]
  - RESPIRATORY DISORDER [None]
